FAERS Safety Report 9520261 (Version 1)
Quarter: 2013Q3

REPORT INFORMATION
  Report Type: Spontaneous
  Country: GB (occurrence: GB)
  Receive Date: 20130912
  Receipt Date: 20130912
  Transmission Date: 20140515
  Serious: Yes (Life-Threatening, Disabling, Other)
  Sender: FDA-Public Use
  Company Number: GB-WATSON-2013-16382

PATIENT
  Sex: 0

DRUGS (1)
  1. RISPERIDONE (UNKNOWN) [Suspect]
     Indication: DELUSIONAL DISORDER, UNSPECIFIED TYPE
     Dosage: 3 MG, UNKNOWN
     Route: 065
     Dates: start: 20090601, end: 20130210

REACTIONS (13)
  - Heart injury [Unknown]
  - Hypertension [Unknown]
  - Motor dysfunction [Unknown]
  - Headache [Unknown]
  - Tachycardia [Unknown]
  - Sedation [Unknown]
  - Disorientation [Unknown]
  - Communication disorder [Unknown]
  - Withdrawal syndrome [Unknown]
  - Dissociation [Unknown]
  - Speech disorder [Unknown]
  - Memory impairment [Unknown]
  - Mental impairment [Unknown]
